FAERS Safety Report 19001677 (Version 1)
Quarter: 2021Q1

REPORT INFORMATION
  Report Type: Spontaneous
  Country: US (occurrence: US)
  Receive Date: 20210312
  Receipt Date: 20210312
  Transmission Date: 20210420
  Serious: No
  Sender: FDA-Public Use
  Company Number: US-FARMAPROD-202011-1582

PATIENT
  Age: 67 Year
  Sex: Female

DRUGS (6)
  1. LIFITEGRAST [Concomitant]
     Active Substance: LIFITEGRAST
  2. MOXIFLOXACIN. [Concomitant]
     Active Substance: MOXIFLOXACIN
  3. ARTIFICIAL TEARS [Concomitant]
     Active Substance: GLYCERIN\HYPROMELLOSES\POLYETHYLENE GLYCOL 400
  4. ERYTHROMYCIN. [Concomitant]
     Active Substance: ERYTHROMYCIN
     Route: 047
  5. CYCLOSPORINE. [Concomitant]
     Active Substance: CYCLOSPORINE
     Route: 047
  6. OXERVATE [Suspect]
     Active Substance: CENEGERMIN-BKBJ
     Indication: KERATITIS
     Route: 047

REACTIONS (1)
  - Disease recurrence [Unknown]
